FAERS Safety Report 4730175-6 (Version None)
Quarter: 2005Q3

REPORT INFORMATION
  Report Type: 
  Country: None (occurrence: None)
  Receive Date: 20050801
  Receipt Date: 20050722
  Transmission Date: 20060218
  Serious: Yes (Hospitalization)
  Sender: FDA-Public Use
  Company Number: US-GLAXOSMITHKLINE-A0567994A

PATIENT
  Age: 28 Year
  Sex: Female
  Weight: 50.9 kg

DRUGS (7)
  1. TOPOTECAN [Suspect]
     Indication: CERVIX CARCINOMA STAGE II
     Dosage: .75MGM2 CYCLIC
     Route: 042
     Dates: start: 20020429
  2. CISPLATIN [Suspect]
     Indication: CERVIX CARCINOMA STAGE II
     Dosage: 50MGM2 CYCLIC
     Route: 042
     Dates: start: 20020429
  3. SYNTHROID [Concomitant]
  4. METHADONE [Concomitant]
  5. NEURONTIN [Concomitant]
  6. LORTAB [Concomitant]
  7. FOSAMAX [Concomitant]

REACTIONS (9)
  - ANAEMIA [None]
  - DEHYDRATION [None]
  - DYSURIA [None]
  - MALNUTRITION [None]
  - NAUSEA [None]
  - NEUTROPENIA [None]
  - PAIN [None]
  - THROMBOCYTOPENIA [None]
  - VOMITING [None]
